FAERS Safety Report 13908302 (Version 2)
Quarter: 2017Q4

REPORT INFORMATION
  Report Type: Report from Study
  Country: None (occurrence: US)
  Receive Date: 20170826
  Receipt Date: 20171205
  Transmission Date: 20180320
  Serious: Yes (Hospitalization, Other)
  Sender: FDA-Public Use
  Company Number: US-ABBVIE-17K-163-1870029-00

PATIENT
  Sex: Male

DRUGS (4)
  1. HUMIRA [Suspect]
     Active Substance: ADALIMUMAB
     Dosage: DAY 15
     Route: 058
     Dates: start: 20170127, end: 20170127
  2. HUMIRA [Suspect]
     Active Substance: ADALIMUMAB
     Route: 058
     Dates: start: 2017, end: 201707
  3. HUMIRA [Suspect]
     Active Substance: ADALIMUMAB
     Indication: CROHN^S DISEASE
     Dosage: DAY 1
     Route: 058
     Dates: start: 20170113, end: 20170113
  4. HUMIRA [Suspect]
     Active Substance: ADALIMUMAB
     Route: 058
     Dates: start: 201707

REACTIONS (25)
  - Fatigue [Unknown]
  - Abdominal pain [Recovering/Resolving]
  - Nausea [Not Recovered/Not Resolved]
  - Fear [Unknown]
  - Depressed mood [Unknown]
  - Diarrhoea [Recovering/Resolving]
  - Clostridium difficile colitis [Unknown]
  - Cortisol decreased [Unknown]
  - Inappropriate schedule of drug administration [Unknown]
  - Depression [Not Recovered/Not Resolved]
  - Abdominal pain upper [Unknown]
  - Vomiting [Unknown]
  - Rectal haemorrhage [Not Recovered/Not Resolved]
  - Loss of personal independence in daily activities [Not Recovered/Not Resolved]
  - Weight decreased [Unknown]
  - Anxiety [Not Recovered/Not Resolved]
  - Clostridium difficile infection [Recovered/Resolved]
  - Insomnia [Not Recovered/Not Resolved]
  - Adrenal insufficiency [Unknown]
  - Visual impairment [Recovered/Resolved]
  - Insomnia [Unknown]
  - Anxiety [Unknown]
  - Decreased appetite [Recovering/Resolving]
  - Constipation [Recovering/Resolving]
  - Dehydration [Unknown]

NARRATIVE: CASE EVENT DATE: 2017
